FAERS Safety Report 9004651 (Version 3)
Quarter: 2013Q1

REPORT INFORMATION
  Report Type: Spontaneous
  Country: US (occurrence: US)
  Receive Date: 20130109
  Receipt Date: 20130312
  Transmission Date: 20140127
  Serious: No
  Sender: FDA-Public Use
  Company Number: US-PFIZER INC-2013004450

PATIENT
  Sex: 0

DRUGS (1)
  1. NORVASC [Suspect]
     Dosage: UNK
     Dates: start: 2005

REACTIONS (3)
  - Rash generalised [Unknown]
  - Skin discolouration [Unknown]
  - Feeling abnormal [Unknown]
